FAERS Safety Report 20689273 (Version 2)
Quarter: 2022Q4

REPORT INFORMATION
  Report Type: Spontaneous
  Country: FR (occurrence: FR)
  Receive Date: 20220408
  Receipt Date: 20221213
  Transmission Date: 20230112
  Serious: Yes (Death, Hospitalization, Other)
  Sender: FDA-Public Use
  Company Number: FR-GLAXOSMITHKLINE-FR2022EME060051

PATIENT

DRUGS (5)
  1. BELANTAMAB MAFODOTIN [Suspect]
     Active Substance: BELANTAMAB MAFODOTIN
     Indication: Plasma cell myeloma
     Dosage: 185 MG, EVERY 3 WEEK
     Route: 042
     Dates: start: 20210512, end: 20210615
  2. KYPROLIS [Concomitant]
     Active Substance: CARFILZOMIB
     Indication: Product used for unknown indication
     Dosage: UNK
     Dates: start: 201907, end: 202103
  3. KYPROLIS [Concomitant]
     Active Substance: CARFILZOMIB
     Dosage: UNK
     Dates: start: 202103, end: 202105
  4. POMALIDOMIDE [Concomitant]
     Active Substance: POMALIDOMIDE
     Indication: Product used for unknown indication
     Dosage: UNK
     Dates: start: 201907, end: 202103
  5. CYCLOPHOSPHAMIDE [Concomitant]
     Active Substance: CYCLOPHOSPHAMIDE
     Indication: Product used for unknown indication
     Dosage: UNK
     Dates: start: 202103, end: 202105

REACTIONS (13)
  - Fall [Fatal]
  - Head injury [Fatal]
  - Infusion related reaction [Recovered/Resolved]
  - Acute kidney injury [Recovering/Resolving]
  - Staphylococcal bacteraemia [Recovered/Resolved]
  - Escherichia infection [Recovered/Resolved]
  - Venous thrombosis [Recovering/Resolving]
  - Thrombocytopenia [Recovered/Resolved]
  - Melaena [Unknown]
  - Anaemia [Recovered/Resolved]
  - Corneal erosion [Recovering/Resolving]
  - General physical health deterioration [Unknown]
  - Epistaxis [Unknown]

NARRATIVE: CASE EVENT DATE: 20210512
